FAERS Safety Report 6852817-1 (Version None)
Quarter: 2010Q3

REPORT INFORMATION
  Report Type: 
  Country: None (occurrence: None)
  Receive Date: 20100717
  Receipt Date: 20071120
  Transmission Date: 20110219
  Serious: Yes (Hospitalization, Other)
  Sender: FDA-Public Use
  Company Number: US-PFIZER INC-2007099349

PATIENT
  Age: 21 Year
  Sex: Male
  Weight: 109.09 kg

DRUGS (4)
  1. CHANTIX [Suspect]
     Indication: SMOKING CESSATION THERAPY
     Dates: start: 20061201, end: 20070301
  2. CELEXA [Suspect]
     Indication: BIPOLAR DISORDER
     Dosage: BID EVERY DAY TDD:15 MG
  3. LITHIUM [Concomitant]
     Dosage: 1650 MG
  4. ZYPREXA [Concomitant]

REACTIONS (1)
  - SUICIDAL IDEATION [None]
